FAERS Safety Report 19097193 (Version 2)
Quarter: 2021Q2

REPORT INFORMATION
  Report Type: Report from Study
  Country: CA (occurrence: CA)
  Receive Date: 20210406
  Receipt Date: 20210622
  Transmission Date: 20210717
  Serious: Yes (Other)
  Sender: FDA-Public Use
  Company Number: CA-UCBSA-2021015107

PATIENT
  Age: 31 Year
  Sex: Female

DRUGS (11)
  1. VIMPAT [Suspect]
     Active Substance: LACOSAMIDE
     Indication: FOCAL DYSCOGNITIVE SEIZURES
     Dosage: 100 MILLIGRAM; FREQUENCY UNKNOWN
     Route: 048
  2. VIMPAT [Suspect]
     Active Substance: LACOSAMIDE
     Indication: GENERALISED TONIC-CLONIC SEIZURE
     Dosage: 150 MG IN AM AND NOON, 100 MG AT NIGHT
     Route: 048
     Dates: start: 20210321
  3. BRIVARACETAM [Suspect]
     Active Substance: BRIVARACETAM
     Indication: GENERALISED TONIC-CLONIC SEIZURE
  4. BRIVARACETAM [Suspect]
     Active Substance: BRIVARACETAM
     Indication: OFF LABEL USE
  5. VIMPAT [Suspect]
     Active Substance: LACOSAMIDE
     Indication: EPILEPSY
     Dosage: 150 MILLIGRAM, 3X/DAY (TID)
     Route: 048
     Dates: start: 20190519
  6. BRIVARACETAM [Suspect]
     Active Substance: BRIVARACETAM
     Indication: EPILEPSY
     Dosage: 100 MG IN AM AND NOON, 50 MG AT NIGHT
     Route: 048
     Dates: start: 201709
  7. VIMPAT [Suspect]
     Active Substance: LACOSAMIDE
     Indication: SEIZURE CLUSTER
     Dosage: 150 MG IN AM, 100 MG AT NIGHT
     Route: 048
  8. VIMPAT [Suspect]
     Active Substance: LACOSAMIDE
     Indication: EPILEPSY
  9. VIMPAT [Suspect]
     Active Substance: LACOSAMIDE
     Indication: OFF LABEL USE
  10. BRIVARACETAM [Suspect]
     Active Substance: BRIVARACETAM
     Indication: FOCAL DYSCOGNITIVE SEIZURES
  11. BRIVARACETAM [Suspect]
     Active Substance: BRIVARACETAM
     Indication: SEIZURE CLUSTER

REACTIONS (6)
  - Overdose [Unknown]
  - Off label use [Unknown]
  - Somnolence [Recovered/Resolved]
  - Seizure [Recovering/Resolving]
  - Dizziness [Recovered/Resolved]
  - Autism spectrum disorder [Unknown]

NARRATIVE: CASE EVENT DATE: 201709
